FAERS Safety Report 6286788-6 (Version None)
Quarter: 2009Q3

REPORT INFORMATION
  Report Type: 
  Country: None (occurrence: None)
  Receive Date: 20090727
  Receipt Date: 20090727
  Transmission Date: 20100115
  Serious: No
  Sender: FDA-Public Use
  Company Number: None

PATIENT
  Sex: Male

DRUGS (2)
  1. LAMICTAL [Suspect]
     Indication: EPILEPSY
     Dosage: ONCE PO BID PO
     Route: 048
  2. KEPPRA [Suspect]
     Indication: EPILEPSY
     Dosage: TWICE TABS BID PO
     Route: 048

REACTIONS (1)
  - NO ADVERSE EVENT [None]
